FAERS Safety Report 7043818 (Version 51)
Quarter: 2016Q2

REPORT INFORMATION
  Report Type: Report from Study
  Country: CA (occurrence: CA)
  Receive Date: 20090708
  Receipt Date: 20160620
  Transmission Date: 20160815
  Serious: Yes (Hospitalization, Other)
  Sender: FDA-Public Use
  Company Number: PHHY2009CA26156

PATIENT
  Age: 78 Year
  Sex: Male

DRUGS (14)
  1. SANDOSTATIN LAR DEPOT [Suspect]
     Active Substance: OCTREOTIDE ACETATE
     Indication: METASTATIC CARCINOID TUMOUR
     Dosage: 30 MG, ONCE IN THREE WEEKS
     Route: 030
     Dates: start: 20070425
  2. SANDOSTATIN LAR DEPOT [Suspect]
     Active Substance: OCTREOTIDE ACETATE
     Dosage: 30 MG
     Route: 030
     Dates: start: 20080205
  3. FOLIC ACID. [Concomitant]
     Active Substance: FOLIC ACID
     Indication: PRODUCT USED FOR UNKNOWN INDICATION
     Route: 065
  4. WARFARIN [Concomitant]
     Active Substance: WARFARIN
     Indication: ANTICOAGULANT THERAPY
     Route: 065
  5. FLUOXETIN [Concomitant]
     Active Substance: FLUOXETINE HYDROCHLORIDE
     Indication: PRODUCT USED FOR UNKNOWN INDICATION
     Route: 065
  6. SANDOSTATIN LAR DEPOT [Suspect]
     Active Substance: OCTREOTIDE ACETATE
     Dosage: 30 MG, ONCE IN THREE WEEKS
     Route: 030
  7. COUMADIN [Concomitant]
     Active Substance: WARFARIN SODIUM
     Indication: PRODUCT USED FOR UNKNOWN INDICATION
     Route: 065
  8. YTTRIUM Y-90 [Concomitant]
     Active Substance: YTTRIUM Y-90
     Indication: PRODUCT USED FOR UNKNOWN INDICATION
     Route: 065
  9. LOSEC [Concomitant]
     Active Substance: OMEPRAZOLE
     Indication: PRODUCT USED FOR UNKNOWN INDICATION
     Route: 065
  10. VITAMIN B6 [Concomitant]
     Active Substance: PYRIDOXINE HYDROCHLORIDE
     Indication: PRODUCT USED FOR UNKNOWN INDICATION
     Route: 065
  11. VITAMIN B12 [Concomitant]
     Active Substance: CYANOCOBALAMIN
     Indication: PRODUCT USED FOR UNKNOWN INDICATION
     Route: 065
  12. SANDOSTATIN LAR DEPOT [Suspect]
     Active Substance: OCTREOTIDE ACETATE
     Dosage: 40 MG, ONCE IN THREE WEEKS
     Route: 030
  13. SANDOSTATIN LAR DEPOT [Suspect]
     Active Substance: OCTREOTIDE ACETATE
     Dosage: 60 MG, ONCE IN THREE WEEKS
     Route: 030
  14. SANDOSTATIN LAR DEPOT [Suspect]
     Active Substance: OCTREOTIDE ACETATE
     Dosage: 40 MG, EVERY 3 WEEKS
     Route: 030

REACTIONS (35)
  - Injection site haemorrhage [Recovered/Resolved]
  - 5-hydroxyindolacetic acid increased [Unknown]
  - Injection site swelling [Not Recovered/Not Resolved]
  - Fatigue [Unknown]
  - Injection site haematoma [Unknown]
  - Cholelithiasis [Unknown]
  - Diverticulitis [Unknown]
  - Hot flush [Recovered/Resolved]
  - Diarrhoea [Unknown]
  - Syringe issue [Unknown]
  - Non-cardiac chest pain [Recovered/Resolved]
  - Injection site bruising [Recovered/Resolved]
  - Blood pressure systolic increased [Unknown]
  - Oesophageal spasm [Recovered/Resolved]
  - Arteriosclerosis [Unknown]
  - Nausea [Unknown]
  - Abdominal pain upper [Not Recovered/Not Resolved]
  - Chest pain [Recovered/Resolved]
  - Weight decreased [Unknown]
  - Pigmentation disorder [Unknown]
  - Injection site mass [Recovered/Resolved]
  - Flatulence [Unknown]
  - Injection site pain [Not Recovered/Not Resolved]
  - Respiratory rate decreased [Unknown]
  - Underdose [Unknown]
  - Inappropriate schedule of drug administration [Unknown]
  - Body temperature decreased [Unknown]
  - Rash [Unknown]
  - Abdominal discomfort [Unknown]
  - Intestinal obstruction [Unknown]
  - Cholecystitis acute [Unknown]
  - Blood pressure increased [Unknown]
  - Pruritus [Unknown]
  - Abdominal distension [Unknown]
  - Abdominal pain [Recovered/Resolved]

NARRATIVE: CASE EVENT DATE: 20070425
